FAERS Safety Report 6167953-5 (Version None)
Quarter: 2009Q2

REPORT INFORMATION
  Report Type: 
  Country: None (occurrence: None)
  Receive Date: 20090427
  Receipt Date: 20090420
  Transmission Date: 20091009
  Serious: Yes (Hospitalization)
  Sender: FDA-Public Use
  Company Number: US-BAYER-200917155NA

PATIENT
  Age: 33 Year
  Sex: Female
  Weight: 103 kg

DRUGS (5)
  1. MIRENA [Suspect]
     Indication: DRUG USE FOR UNKNOWN INDICATION
     Route: 015
     Dates: start: 20090319, end: 20090323
  2. ATENOLOL [Concomitant]
     Dosage: TOTAL DAILY DOSE: 25 MG
     Route: 048
  3. HYDROCHLOROTHIAZIDE [Concomitant]
     Dosage: TOTAL DAILY DOSE: 25 MG
     Route: 048
  4. TOPAMAX [Concomitant]
     Dosage: TOTAL DAILY DOSE: 25 MG
     Route: 048
  5. PROVENTIL [Concomitant]
     Route: 045

REACTIONS (6)
  - BACK PAIN [None]
  - HEADACHE [None]
  - NECK PAIN [None]
  - OEDEMA GENITAL [None]
  - OEDEMA PERIPHERAL [None]
  - RASH ERYTHEMATOUS [None]
